APPROVED DRUG PRODUCT: JAYTHARI
Active Ingredient: DEFLAZACORT
Strength: 36MG
Dosage Form/Route: TABLET;ORAL
Application: A219254 | Product #004 | TE Code: AB
Applicant: ZYDUS LIFESCIENCES GLOBAL FZE
Approved: Apr 8, 2025 | RLD: No | RS: No | Type: RX